APPROVED DRUG PRODUCT: PILOCARPINE HYDROCHLORIDE
Active Ingredient: PILOCARPINE HYDROCHLORIDE
Strength: 5MG
Dosage Form/Route: TABLET;ORAL
Application: A076746 | Product #001 | TE Code: AB
Applicant: PADAGIS US LLC
Approved: Nov 16, 2004 | RLD: No | RS: No | Type: RX